FAERS Safety Report 6049279-3 (Version None)
Quarter: 2009Q1

REPORT INFORMATION
  Report Type: 
  Country: None (occurrence: None)
  Receive Date: 20090123
  Receipt Date: 20090112
  Transmission Date: 20090719
  Serious: Yes (Hospitalization, Other)
  Sender: FDA-Public Use
  Company Number: PHHO2007MX01041

PATIENT
  Sex: Female

DRUGS (1)
  1. DIOVAN HCT [Suspect]
     Indication: HYPERTENSION
     Dosage: 160MG/12.5MG DAILY
     Route: 048
     Dates: start: 20050701

REACTIONS (3)
  - CEREBROVASCULAR DISORDER [None]
  - GAIT DISTURBANCE [None]
  - PNEUMONIA [None]
